FAERS Safety Report 8488096-1 (Version None)
Quarter: 2012Q3

REPORT INFORMATION
  Report Type: 
  Country: None (occurrence: None)
  Receive Date: 20120705
  Receipt Date: 20120702
  Transmission Date: 20120928
  Serious: Yes (Other)
  Sender: FDA-Public Use
  Company Number: US-PFIZER INC-2012149100

PATIENT
  Sex: Female

DRUGS (21)
  1. TOPAMAX [Concomitant]
     Dosage: 50 MG, 2X/DAY
     Route: 048
  2. TENORMIN [Concomitant]
     Dosage: 50 MG, 1X/DAY
     Route: 048
  3. VITAMIN D [Concomitant]
     Dosage: 5,000 UNIT TAB INT'L UNITS BY MOUTH DAILY
     Route: 048
  4. REGLAN [Concomitant]
     Dosage: 10 MG, 1X/DAY. NIGHTLY
     Route: 048
  5. WELCHOL [Concomitant]
     Dosage: 625 MG, TAKE 1 OR 2 TABLETS 2-3 TIMES A WEEK
  6. SPIRIVA [Concomitant]
     Dosage: 18 UG, 1X/DAY, 1 CAPSULE INTO THE LUNGS
     Route: 055
  7. ULTRAM [Concomitant]
     Dosage: 50 MG, 3X/DAY
     Route: 048
  8. SYNTHROID [Concomitant]
     Dosage: 112 UG, 1X/DAY
     Route: 048
  9. FLEXERIL [Concomitant]
     Indication: MUSCLE SPASMS
     Dosage: 10 MG, 3X/DAY, AS NEEDED
     Route: 048
  10. PRILOSEC [Concomitant]
     Dosage: 20 MG, 1X/DAY
     Route: 048
  11. ZYRTEC [Concomitant]
     Dosage: 10 MG, 1X/DAY
     Route: 048
  12. NEXIUM [Concomitant]
     Dosage: 40 MG, 1X/DAY, EVERY MORNING BEFORE BREAKFAST.
     Route: 048
  13. SYMBICORT [Concomitant]
     Dosage: 2 PUFFS INTO THE LUNGS 2 (TWO) TIMES DAILY
  14. LOVAZA [Concomitant]
     Dosage: 1 G, 2X/DAY
     Route: 048
  15. SINGULAIR [Concomitant]
     Dosage: 10 MG, 1X/DAY, NIGHTLY
     Route: 048
  16. VITAMIN B-12 [Concomitant]
     Dosage: 2500 UG, PLACE 1 TABLET UNDER THE
  17. ZOLOFT [Suspect]
     Dosage: 200 MG, 1X/DAY (100MG 2 PO DAILY)(50MG TABLET: TAKE 4 TABLETS BY MOUTH NIGHTLY)
     Route: 048
  18. BUSPAR [Concomitant]
     Dosage: 10 MG, 3X/DAY
     Route: 048
  19. PROVENTIL-HFA [Concomitant]
     Dosage: 90 UG, 4X/DAY, INHALE 2 PUFFS INTO THE LUNGS
     Route: 055
  20. LACTAID [Concomitant]
     Dosage: TAKE ONE TABLET BY MOUTH 3(THREE) TIMES DAILY WITH MEALS
     Route: 048
  21. LIDODERM [Concomitant]
     Dosage: 5 % 700MG/PATCH. PLACE 1 PATCH ONTO THE SKIN DAILY. REMOVE + DISCARD PATCH WITHIN 12 HOURS

REACTIONS (15)
  - VITAMIN D DEFICIENCY [None]
  - CONTINUOUS POSITIVE AIRWAY PRESSURE [None]
  - BLOOD CHOLESTEROL INCREASED [None]
  - SLEEP APNOEA SYNDROME [None]
  - DEPRESSION [None]
  - ANAEMIA [None]
  - HYPOTHYROIDISM [None]
  - BACK PAIN [None]
  - ESSENTIAL HYPERTENSION [None]
  - GASTROOESOPHAGEAL REFLUX DISEASE [None]
  - VITAMIN B12 DEFICIENCY [None]
  - CHRONIC OBSTRUCTIVE PULMONARY DISEASE [None]
  - OBESITY [None]
  - ARTHRALGIA [None]
  - ANXIETY DISORDER [None]
